FAERS Safety Report 4963339-7 (Version None)
Quarter: 2006Q2

REPORT INFORMATION
  Report Type: 
  Country: None (occurrence: None)
  Receive Date: 20060404
  Receipt Date: 20060404
  Transmission Date: 20061013
  Serious: Yes (Hospitalization)
  Sender: FDA-Public Use
  Company Number: None

PATIENT
  Age: 57 Year
  Sex: Male

DRUGS (2)
  1. ACETAMINOPHEN AND HYDROCODONE BITARTRATE [Suspect]
     Indication: BACK PAIN
     Dosage: 2Q6HR PRN (NOT EXCEED 8 TAB DAILY)
  2. MORPHINE [Suspect]
     Dosage: 100 MG PO BID
     Route: 048

REACTIONS (5)
  - AMNESIA [None]
  - HYPOTENSION [None]
  - HYPOVOLAEMIA [None]
  - MENTAL STATUS CHANGES [None]
  - MIOSIS [None]
